FAERS Safety Report 21675423 (Version 1)
Quarter: 2022Q4

REPORT INFORMATION
  Report Type: Spontaneous
  Country: US (occurrence: None)
  Receive Date: 20221202
  Receipt Date: 20221202
  Transmission Date: 20230112
  Serious: Yes (Other)
  Sender: FDA-Public Use
  Company Number: None

PATIENT
  Age: 76 Year
  Sex: Female
  Weight: 55.7 kg

DRUGS (1)
  1. RITUXAN [Suspect]
     Active Substance: RITUXIMAB
     Indication: Non-Hodgkin^s lymphoma
     Dosage: OTHER FREQUENCY : WEEKLY;?
     Route: 041

REACTIONS (7)
  - Nausea [None]
  - Flushing [None]
  - Pallor [None]
  - Hyperhidrosis [None]
  - Blood pressure decreased [None]
  - Heart rate decreased [None]
  - Infusion related reaction [None]

NARRATIVE: CASE EVENT DATE: 20221201
